FAERS Safety Report 26118290 (Version 2)
Quarter: 2025Q4

REPORT INFORMATION
  Report Type: Spontaneous
  Country: JP (occurrence: JP)
  Receive Date: 20251203
  Receipt Date: 20251222
  Transmission Date: 20260118
  Serious: Yes (Other)
  Sender: PFIZER
  Company Number: JP-PFIZER INC-202500235924

PATIENT
  Age: 34 Year
  Sex: Male
  Weight: 38 kg

DRUGS (14)
  1. VORICONAZOLE [Suspect]
     Active Substance: VORICONAZOLE
     Indication: Bronchopulmonary aspergillosis
     Dosage: 200 MG/DOSE (FIRST DAY)
     Dates: start: 2017
  2. VORICONAZOLE [Suspect]
     Active Substance: VORICONAZOLE
     Dosage: 120 MG/DOSE, 2X/DAY
     Dates: start: 2017
  3. VORICONAZOLE [Suspect]
     Active Substance: VORICONAZOLE
     Dosage: 150 MG/DOSE
     Dates: start: 2017
  4. VORICONAZOLE [Suspect]
     Active Substance: VORICONAZOLE
     Dosage: 80 MG, 2X/DAY
     Dates: start: 2017
  5. VORICONAZOLE [Suspect]
     Active Substance: VORICONAZOLE
     Dosage: 200 MG, DAILY
     Dates: start: 2017
  6. VORICONAZOLE [Suspect]
     Active Substance: VORICONAZOLE
     Dosage: 240 MG, DAILY
     Dates: start: 2017
  7. VORICONAZOLE [Suspect]
     Active Substance: VORICONAZOLE
     Dosage: 300 MG, DAILY
     Dates: start: 2017
  8. CASPOFUNGIN [Concomitant]
     Active Substance: CASPOFUNGIN
     Indication: Aspergillus infection
     Dosage: 70 MG, DAILY (FIRST DAY)
     Dates: start: 2017
  9. CASPOFUNGIN [Concomitant]
     Active Substance: CASPOFUNGIN
     Dosage: 50 MG, DAILY
     Dates: start: 2017
  10. PIPERACILLIN SODIUM\TAZOBACTAM SODIUM [Concomitant]
     Active Substance: PIPERACILLIN SODIUM\TAZOBACTAM SODIUM
     Indication: Anti-infective therapy
     Dosage: 13.5 G, DAILY
     Dates: start: 2017
  11. CEFEPIME [Concomitant]
     Active Substance: CEFEPIME HYDROCHLORIDE
     Indication: Anti-infective therapy
     Dosage: 2 G, DAILY
     Dates: start: 2017
  12. CEFEPIME [Concomitant]
     Active Substance: CEFEPIME HYDROCHLORIDE
     Dosage: 2 G, DAILY
     Dates: start: 2017
  13. MEROPENEM [Concomitant]
     Active Substance: MEROPENEM
     Indication: Anti-infective therapy
     Dosage: 1.5 G, DAILY
     Dates: start: 2017
  14. MEROPENEM [Concomitant]
     Active Substance: MEROPENEM
     Dosage: 1.5 G, DAILY
     Dates: start: 2017

REACTIONS (2)
  - Hypoglycaemia [Recovering/Resolving]
  - Drug level increased [Recovering/Resolving]

NARRATIVE: CASE EVENT DATE: 20170101
